FAERS Safety Report 22313110 (Version 2)
Quarter: 2023Q2

REPORT INFORMATION
  Report Type: Report from Study
  Country: JP (occurrence: JP)
  Receive Date: 20230512
  Receipt Date: 20230519
  Transmission Date: 20230721
  Serious: Yes (Life-Threatening, Hospitalization)
  Sender: FDA-Public Use
  Company Number: JP-ASTELLAS-2022JP015795

PATIENT
  Age: 66 Year
  Sex: Male

DRUGS (15)
  1. ENFORTUMAB VEDOTIN [Suspect]
     Active Substance: ENFORTUMAB VEDOTIN
     Indication: Transitional cell carcinoma
     Dosage: 1.25 MG/KG, AT WEEK 1, 2 AND 3
     Route: 041
     Dates: start: 20220331, end: 20220331
  2. ENFORTUMAB VEDOTIN [Suspect]
     Active Substance: ENFORTUMAB VEDOTIN
     Dosage: 1.25 MG/KG, AT WEEK 1, 2 AND 3
     Route: 041
     Dates: start: 20220421, end: 20220421
  3. ENFORTUMAB VEDOTIN [Suspect]
     Active Substance: ENFORTUMAB VEDOTIN
     Dosage: 1.25 MG/KG, AT WEEK 1, 2 AND 3
     Route: 041
     Dates: start: 20220506, end: 20220506
  4. ENFORTUMAB VEDOTIN [Suspect]
     Active Substance: ENFORTUMAB VEDOTIN
     Dosage: 1.25 MG/KG, AT WEEK 1, 2 AND 3
     Route: 041
     Dates: start: 20220527, end: 20220916
  5. ENFORTUMAB VEDOTIN [Suspect]
     Active Substance: ENFORTUMAB VEDOTIN
     Dosage: 1.25 MG/KG, AT WEEK 1, 2 AND 3
     Route: 041
     Dates: start: 20221014, end: 20221111
  6. ZOLEDRONIC ACID [Suspect]
     Active Substance: ZOLEDRONIC ACID
     Indication: Metastatic bone disease prophylaxis
     Route: 042
     Dates: start: 20220421, end: 20220421
  7. FUROSEMIDE [Concomitant]
     Active Substance: FUROSEMIDE
     Indication: Product used for unknown indication
     Dosage: 40 MG/DAY, UNKNOWN FREQ.
     Route: 065
  8. CALONAL [Concomitant]
     Active Substance: ACETAMINOPHEN
     Indication: Product used for unknown indication
     Dosage: 4 G/DAY, UNKNOWN FREQ.
     Route: 065
  9. DECADRON [Concomitant]
     Active Substance: DEXAMETHASONE
     Indication: Product used for unknown indication
     Dosage: 2 MG/DAY, UNKNOWN FREQ.
     Route: 065
  10. RABEPRAZOLE [Concomitant]
     Active Substance: RABEPRAZOLE
     Indication: Product used for unknown indication
     Dosage: UNK UNK, UNKNOWN FREQ.
     Route: 065
  11. LINAGLIPTIN [Concomitant]
     Active Substance: LINAGLIPTIN
     Indication: Product used for unknown indication
     Dosage: UNK UNK, UNKNOWN FREQUENCY, ADMINISTERED DURING PADCEV ADMINISTRATION
     Route: 048
  12. REPAGLINIDE [Concomitant]
     Active Substance: REPAGLINIDE
     Indication: Product used for unknown indication
     Dosage: UNK UNK, UNKNOWN FREQUENCY, ADMINISTERED DURING PADCEV ADMINISTRATION
     Route: 048
  13. VOGLIBOSE [Concomitant]
     Active Substance: VOGLIBOSE
     Indication: Product used for unknown indication
     Dosage: UNK UNK, UNKNOWN FREQUENCY, ADMINISTERED DURING PADCEV ADMINISTRATION
     Route: 048
  14. PIPERACILLIN SODIUM\TAZOBACTAM SODIUM [Concomitant]
     Active Substance: PIPERACILLIN SODIUM\TAZOBACTAM SODIUM
     Indication: Escherichia infection
     Route: 042
     Dates: start: 20220405, end: 20220411
  15. CEFMETAZOLE [Concomitant]
     Active Substance: CEFMETAZOLE
     Indication: Escherichia infection
     Route: 042
     Dates: start: 20220412, end: 20220418

REACTIONS (4)
  - Hypercalcaemia [Not Recovered/Not Resolved]
  - Pyrexia [Recovering/Resolving]
  - Hyperglycaemia [Not Recovered/Not Resolved]
  - Hypocalcaemia [Recovering/Resolving]

NARRATIVE: CASE EVENT DATE: 20220405
